FAERS Safety Report 6393900-7 (Version None)
Quarter: 2009Q4

REPORT INFORMATION
  Report Type: 
  Country: None (occurrence: None)
  Receive Date: 20091008
  Receipt Date: 20090930
  Transmission Date: 20100525
  Serious: Yes (Other)
  Sender: FDA-Public Use
  Company Number: US-GENENTECH-287265

PATIENT
  Sex: Male
  Weight: 76.19 kg

DRUGS (3)
  1. RITUXAN [Suspect]
     Indication: LYMPHOMA
     Dosage: 375 MG/M2, Q4W
     Route: 042
     Dates: start: 20080701, end: 20081119
  2. ALLEGRA D 24 HOUR [Concomitant]
     Indication: DRUG USE FOR UNKNOWN INDICATION
     Dosage: UNK
  3. VERAMYST [Concomitant]
     Indication: DRUG USE FOR UNKNOWN INDICATION
     Dosage: 27.5 A?G, UNK
     Route: 045

REACTIONS (2)
  - HEPATIC FAILURE [None]
  - HEPATITIS B [None]
